FAERS Safety Report 10181504 (Version 1)
Quarter: 2014Q2

REPORT INFORMATION
  Report Type: Spontaneous
  Country: US (occurrence: US)
  Receive Date: 20140519
  Receipt Date: 20140519
  Transmission Date: 20141212
  Serious: Yes (Hospitalization)
  Sender: FDA-Public Use
  Company Number: US-GLAXOSMITHKLINE-A1073139A

PATIENT
  Age: 71 Year
  Sex: Male

DRUGS (9)
  1. ARIXTRA [Suspect]
     Indication: THROMBOSIS PROPHYLAXIS
     Dosage: 7.5MG PER DAY
     Dates: start: 201304
  2. LIPITOR [Concomitant]
  3. COREG [Concomitant]
  4. IMDUR [Concomitant]
  5. LASIX [Concomitant]
  6. PROTONIX [Concomitant]
  7. PREDNISONE [Concomitant]
  8. ZOLOFT [Concomitant]
  9. LOSARTAN [Concomitant]

REACTIONS (3)
  - Dyspnoea [Recovering/Resolving]
  - Asthenia [Recovering/Resolving]
  - Pleural effusion [Recovering/Resolving]
